FAERS Safety Report 18843212 (Version 1)
Quarter: 2021Q1

REPORT INFORMATION
  Report Type: Spontaneous
  Country: US (occurrence: US)
  Receive Date: 20210203
  Receipt Date: 20210203
  Transmission Date: 20210419
  Serious: Yes (Life-Threatening, Disabling, Other)
  Sender: FDA-Public Use
  Company Number: None

PATIENT
  Age: 40 Year
  Sex: Male
  Weight: 76.5 kg

DRUGS (6)
  1. ESCITALOPRAM [Concomitant]
     Active Substance: ESCITALOPRAM OXALATE
  2. DEXTROAMPHET SACCHARAT, AMPHET ASPARTATE, DEXTROAMPHET SULFATE AND AMPHET SULFAT [Suspect]
     Active Substance: AMPHETAMINE ASPARTATE\AMPHETAMINE SULFATE\DEXTROAMPHETAMINE SACCHARATE\DEXTROAMPHETAMINE SULFATE
     Indication: ATTENTION DEFICIT HYPERACTIVITY DISORDER
     Dosage: ?          QUANTITY:180 CAPSULE(S);?
     Route: 048
     Dates: start: 20201115, end: 20210112
  3. IR TAB [Concomitant]
  4. AMPHETAMINE SALTS 5MG [Concomitant]
  5. FEXOFENADINE 180MG [Concomitant]
     Active Substance: FEXOFENADINE HYDROCHLORIDE
  6. VITAMIN D3 100MCG [Concomitant]

REACTIONS (6)
  - Drug ineffective [None]
  - Depression [None]
  - Suicidal ideation [None]
  - Headache [None]
  - Narcolepsy [None]
  - Product substitution issue [None]

NARRATIVE: CASE EVENT DATE: 20210101
